FAERS Safety Report 10908059 (Version 2)
Quarter: 2015Q3

REPORT INFORMATION
  Report Type: Spontaneous
  Country: US (occurrence: US)
  Receive Date: 20150312
  Receipt Date: 20150924
  Transmission Date: 20151125
  Serious: No
  Sender: FDA-Public Use
  Company Number: US-INCYTE CORPORATION-2015IN000380

PATIENT
  Age: 49 Year
  Sex: Male
  Weight: 81.63 kg

DRUGS (21)
  1. BIOTIN [Concomitant]
     Active Substance: BIOTIN
  2. ASPIRIN. [Concomitant]
     Active Substance: ASPIRIN
  3. VITAMIN C [Concomitant]
     Active Substance: ASCORBIC ACID
  4. CHANTIX [Concomitant]
     Active Substance: VARENICLINE TARTRATE
  5. VITAMIN E [Concomitant]
     Active Substance: .ALPHA.-TOCOPHEROL
  6. JAKAFI [Suspect]
     Active Substance: RUXOLITINIB
     Indication: POLYCYTHAEMIA VERA
     Dosage: 10 MG, BID
     Route: 048
     Dates: start: 20150106
  7. LANSOPRAZOLE. [Concomitant]
     Active Substance: LANSOPRAZOLE
  8. SERTRALINE [Concomitant]
     Active Substance: SERTRALINE HYDROCHLORIDE
  9. COENZYME Q10 [Concomitant]
     Active Substance: UBIDECARENONE
  10. VALIUM [Concomitant]
     Active Substance: DIAZEPAM
  11. SOMA [Concomitant]
     Active Substance: CARISOPRODOL
  12. FISH OIL                           /00492901/ [Concomitant]
     Active Substance: COD LIVER OIL
  13. GLUCOSAMINE + CHONDROITIN          /01625901/ [Concomitant]
  14. PROPANOLOL                         /00030001/ [Concomitant]
     Active Substance: PROPRANOLOL HYDROCHLORIDE
  15. FLAXSEED [Concomitant]
     Active Substance: FLAX SEED
  16. VITAMIN B12 [Concomitant]
     Active Substance: CYANOCOBALAMIN
  17. CARAFATE [Concomitant]
     Active Substance: SUCRALFATE
  18. LORAZEPAM. [Concomitant]
     Active Substance: LORAZEPAM
  19. NORCO [Concomitant]
     Active Substance: ACETAMINOPHEN\HYDROCODONE BITARTRATE
  20. NEXIUM [Concomitant]
     Active Substance: ESOMEPRAZOLE MAGNESIUM
  21. VITAMIN A                          /00056001/ [Concomitant]
     Active Substance: RETINOL

REACTIONS (6)
  - Flatulence [Not Recovered/Not Resolved]
  - Insomnia [Unknown]
  - Headache [Not Recovered/Not Resolved]
  - Abdominal pain upper [Not Recovered/Not Resolved]
  - Abdominal distension [Not Recovered/Not Resolved]
  - Decreased appetite [Unknown]

NARRATIVE: CASE EVENT DATE: 201501
